FAERS Safety Report 12654728 (Version 1)
Quarter: 2016Q3

REPORT INFORMATION
  Report Type: Spontaneous
  Country: GB (occurrence: GB)
  Receive Date: 20160816
  Receipt Date: 20160816
  Transmission Date: 20161109
  Serious: Yes (Life-Threatening)
  Sender: FDA-Public Use
  Company Number: GB-JNJFOC-20160811261

PATIENT
  Age: 43 Year
  Sex: Male
  Weight: 69.85 kg

DRUGS (1)
  1. HALOPERIDOL. [Suspect]
     Active Substance: HALOPERIDOL
     Indication: PRODUCT USED FOR UNKNOWN INDICATION
     Route: 065

REACTIONS (3)
  - Cerebral disorder [Recovering/Resolving]
  - Pulmonary embolism [Recovering/Resolving]
  - Hypothermia [Recovering/Resolving]

NARRATIVE: CASE EVENT DATE: 20140817
